FAERS Safety Report 10023700 (Version 1)
Quarter: 2014Q1

REPORT INFORMATION
  Report Type: Spontaneous
  Country: US (occurrence: None)
  Receive Date: 20140228
  Receipt Date: 20140228
  Transmission Date: 20141002
  Serious: Yes (Other)
  Sender: FDA-Public Use
  Company Number: 225297

PATIENT
  Age: 46 Year
  Sex: Female

DRUGS (3)
  1. PICATO GEL [Suspect]
     Indication: ACTINIC KERATOSIS
     Dosage: 1/3 OF A TUBE X 3 DAYS, DERMAL
     Dates: start: 20131230, end: 20140102
  2. NAPROXEN (NAPROXEN) [Concomitant]
  3. TYLENOL (PARACETAMOL) [Concomitant]

REACTIONS (5)
  - Application site pain [None]
  - Application site pain [None]
  - Application site discharge [None]
  - Application site exfoliation [None]
  - Wrong technique in drug usage process [None]
